FAERS Safety Report 6343916-1 (Version None)
Quarter: 2009Q3

REPORT INFORMATION
  Report Type: 
  Country: None (occurrence: None)
  Receive Date: 20090908
  Receipt Date: 20090825
  Transmission Date: 20100115
  Serious: Yes (Other)
  Sender: FDA-Public Use
  Company Number: BR-PFIZER INC-2009253220

PATIENT
  Age: 53 Year

DRUGS (2)
  1. CHAMPIX [Suspect]
     Indication: TOBACCO USER
     Dosage: UNK
     Route: 048
     Dates: start: 20090101, end: 20090805
  2. CHAMPIX [Suspect]
     Indication: SMOKING CESSATION THERAPY

REACTIONS (1)
  - HEPATITIS [None]
